FAERS Safety Report 6232530-4 (Version None)
Quarter: 2009Q2

REPORT INFORMATION
  Report Type: 
  Country: None (occurrence: None)
  Receive Date: 20090617
  Receipt Date: 20090608
  Transmission Date: 20091009
  Serious: Yes (Other)
  Sender: FDA-Public Use
  Company Number: US-BAYER-200921323NA

PATIENT
  Age: 53 Year
  Sex: Male

DRUGS (1)
  1. LEUKINE [Suspect]
     Indication: MALIGNANT MELANOMA
     Dosage: TOTAL DAILY DOSE: 250 ?G/KG
     Route: 058
     Dates: start: 20090513, end: 20090518

REACTIONS (2)
  - OCULAR HYPERAEMIA [None]
  - ULCERATIVE KERATITIS [None]
